FAERS Safety Report 5895310-5 (Version None)
Quarter: 2008Q3

REPORT INFORMATION
  Report Type: 
  Country: None (occurrence: None)
  Receive Date: 20080714
  Receipt Date: 20080714
  Transmission Date: 20090109
  Serious: No
  Sender: FDA-Public Use
  Company Number: None

PATIENT
  Age: 72 Year
  Sex: Male
  Weight: 71.2147 kg

DRUGS (1)
  1. CREST PRO-HEALTH RINSE [Suspect]
     Dosage: DAILY

REACTIONS (1)
  - TOOTH DISCOLOURATION [None]
